FAERS Safety Report 21538847 (Version 2)
Quarter: 2022Q4

REPORT INFORMATION
  Report Type: Spontaneous
  Country: US (occurrence: US)
  Receive Date: 20221102
  Receipt Date: 20221207
  Transmission Date: 20230113
  Serious: Yes (Other)
  Sender: FDA-Public Use
  Company Number: US-JNJFOC-20221053626

PATIENT
  Age: 86 Year
  Sex: Female
  Weight: 51.756 kg

DRUGS (12)
  1. XARELTO [Suspect]
     Active Substance: RIVAROXABAN
     Indication: Product used for unknown indication
     Dosage: GTIN NUMBER 00350458578300?SERIAL NUMBER 100010189106
     Route: 048
     Dates: start: 20210517
  2. ASPIRIN [Suspect]
     Active Substance: ASPIRIN
     Indication: Product used for unknown indication
     Route: 065
  3. AMIODARONE [Concomitant]
     Active Substance: AMIODARONE
     Indication: Cardiac disorder
     Route: 065
     Dates: start: 202105
  4. ATORVASTATIN [Concomitant]
     Active Substance: ATORVASTATIN
     Indication: Blood cholesterol
     Route: 065
     Dates: start: 202105
  5. LEVOTHYROXINE [Concomitant]
     Active Substance: LEVOTHYROXINE
     Indication: Thyroid disorder
     Route: 065
     Dates: start: 202105
  6. OMEPRAZOLE [Concomitant]
     Active Substance: OMEPRAZOLE
     Indication: Dyspepsia
     Route: 065
  7. POTASSIUM CHLORIDE [Concomitant]
     Active Substance: POTASSIUM CHLORIDE
     Indication: Cardiac disorder
  8. MAGNESIUM OXIDE [Concomitant]
     Active Substance: MAGNESIUM OXIDE
     Indication: Cardiac disorder
     Route: 065
     Dates: start: 202105
  9. GABAPENTIN [Concomitant]
     Active Substance: GABAPENTIN
     Indication: Myalgia
     Route: 065
     Dates: start: 20221102
  10. ERGOCALCIFEROL [Concomitant]
     Active Substance: ERGOCALCIFEROL
     Indication: Cardiac disorder
     Route: 065
     Dates: start: 202105
  11. DIPHENHYDRAMINE [Concomitant]
     Active Substance: DIPHENHYDRAMINE
     Indication: Multiple allergies
  12. BENEFIBER [Concomitant]
     Active Substance: STARCH, WHEAT
     Indication: Dyspepsia

REACTIONS (14)
  - Aortic valve replacement [Unknown]
  - Atrial fibrillation [Unknown]
  - Rib fracture [Unknown]
  - Catheter site haemorrhage [Unknown]
  - Asthenia [Unknown]
  - Skin discolouration [Unknown]
  - Skin mass [Unknown]
  - Pain [Unknown]
  - Gastric disorder [Not Recovered/Not Resolved]
  - Cough [Not Recovered/Not Resolved]
  - Weight decreased [Unknown]
  - Fall [Unknown]
  - Arthralgia [Unknown]
  - Back pain [Unknown]

NARRATIVE: CASE EVENT DATE: 20210501
